FAERS Safety Report 6016201-5 (Version None)
Quarter: 2008Q4

REPORT INFORMATION
  Report Type: 
  Country: None (occurrence: None)
  Receive Date: 20081218
  Receipt Date: 20081211
  Transmission Date: 20090506
  Serious: Yes (Death)
  Sender: FDA-Public Use
  Company Number: 2008JP005776

PATIENT

DRUGS (3)
  1. PROGRAF [Suspect]
     Indication: STEM CELL TRANSPLANT
  2. METHOTREXATE FORMULATION UNKNOWN [Concomitant]
  3. FLUDARABINE (FLUDARABINE) FORMULATION UNKNOWN [Concomitant]

REACTIONS (1)
  - SEPSIS [None]
